FAERS Safety Report 10166684 (Version 1)
Quarter: 2014Q2

REPORT INFORMATION
  Report Type: Spontaneous
  Country: IT (occurrence: IT)
  Receive Date: 20140512
  Receipt Date: 20140512
  Transmission Date: 20141212
  Serious: Yes (Hospitalization)
  Sender: FDA-Public Use
  Company Number: IT-AMGEN INC.-ITASP2014033321

PATIENT
  Age: 76 Year
  Sex: Male

DRUGS (11)
  1. FILGRASTIM [Suspect]
     Indication: CHEMOTHERAPY
     Dosage: 30 IU, 1 IN 1 D
     Route: 058
     Dates: start: 20140217, end: 20140221
  2. BACTRIM [Suspect]
     Indication: CHEMOTHERAPY
     Dosage: 2 DF, 1 IN 1 CYCLICAL (2 TABLETS DAILY TWICE A WEEK)
     Route: 048
     Dates: start: 20140210, end: 20140310
  3. ACICLOVIR [Suspect]
     Indication: CHEMOTHERAPY
     Dosage: 800 MG, 1 IN 1 D
     Route: 048
     Dates: start: 20140210, end: 20140316
  4. ALKERAN                            /00006401/ [Suspect]
     Indication: PLASMA CELL MYELOMA
     Dosage: 16 MG 1 IN 1 D
     Route: 048
     Dates: start: 20140212, end: 20140215
  5. LEVOXACIN [Suspect]
     Indication: CHEMOTHERAPY
     Dosage: 500 MG, 1 IN 1 D
     Route: 048
     Dates: start: 20140210, end: 20140220
  6. BORTEZOMIB [Suspect]
     Indication: PRODUCT USED FOR UNKNOWN INDICATION
     Dosage: 2.4 MG, 1 IN 1 CYCLICAL
     Route: 065
     Dates: start: 20140210
  7. BORTEZOMIB [Suspect]
     Dosage: 2.4 MG, 1 IN 1 CYCLICAL
     Route: 065
     Dates: start: 20140310
  8. BORTEZOMIB [Suspect]
     Dosage: 2.4 MG, 1 IN 1 CYCLICAL
     Route: 065
     Dates: start: 20140313
  9. RAMIPRIL [Concomitant]
     Dosage: 10 MG, UNK
  10. LASIX                              /00032601/ [Concomitant]
     Dosage: 25 MG, UNK
  11. CARDIOASPIRIN [Concomitant]
     Dosage: 100 MG, UNK

REACTIONS (3)
  - Erythema [Recovering/Resolving]
  - Pruritus [Recovering/Resolving]
  - Rash [Recovering/Resolving]
